FAERS Safety Report 10898195 (Version 1)
Quarter: 2015Q1

REPORT INFORMATION
  Report Type: Report from Study
  Country: US (occurrence: US)
  Receive Date: 20150309
  Receipt Date: 20150309
  Transmission Date: 20150721
  Serious: No
  Sender: FDA-Public Use
  Company Number: US-ABBVIE-14P-163-1301313-00

PATIENT
  Sex: Female
  Weight: 54.03 kg

DRUGS (4)
  1. LUPRON DEPOT [Suspect]
     Active Substance: LEUPROLIDE ACETATE
     Indication: ENDOMETRIOSIS
     Route: 065
     Dates: start: 20140911
  2. NORETHINDRONE ACETATE BY TEVA [Suspect]
     Active Substance: NORETHINDRONE ACETATE
     Indication: PROGESTIN REPLACEMENT THERAPY
     Route: 065
     Dates: start: 20140911
  3. METOPROLOL [Concomitant]
     Active Substance: METOPROLOL
     Indication: PRODUCT USED FOR UNKNOWN INDICATION
     Route: 065
  4. ALEVE [Concomitant]
     Active Substance: NAPROXEN SODIUM
     Indication: PRODUCT USED FOR UNKNOWN INDICATION
     Route: 065

REACTIONS (5)
  - Vomiting [Unknown]
  - Headache [Unknown]
  - Mood altered [Unknown]
  - Urinary tract infection [Unknown]
  - Nausea [Unknown]
